FAERS Safety Report 8274119-1 (Version None)
Quarter: 2012Q2

REPORT INFORMATION
  Report Type: 
  Country: None (occurrence: None)
  Receive Date: 20120406
  Receipt Date: 20120406
  Transmission Date: 20120825
  Serious: Yes (Death)
  Sender: FDA-Public Use
  Company Number: None

PATIENT
  Age: 60 Year
  Sex: Male
  Weight: 51.2565 kg

DRUGS (6)
  1. DECADRON [Concomitant]
  2. TARCEVA [Suspect]
     Indication: NON-SMALL CELL LUNG CANCER
     Dosage: 150MG,DAILY,ORAL
     Route: 048
     Dates: start: 20111214, end: 20120313
  3. NEXIUM [Concomitant]
  4. LOVENOX [Concomitant]
  5. RADIATION TREATMENT [Concomitant]
  6. BENADRYL [Concomitant]

REACTIONS (3)
  - METASTASES TO MENINGES [None]
  - DISEASE PROGRESSION [None]
  - METASTASES TO SPINE [None]
